FAERS Safety Report 22236213 (Version 1)
Quarter: 2023Q2

REPORT INFORMATION
  Report Type: Spontaneous
  Country: US (occurrence: US)
  Receive Date: 20230420
  Receipt Date: 20230420
  Transmission Date: 20230721
  Serious: No
  Sender: FDA-Public Use
  Company Number: US-AMYLYX PHARMACEUTICALS, INC-AMX-002449

PATIENT
  Sex: Female

DRUGS (3)
  1. RELYVRIO [Suspect]
     Active Substance: SODIUM PHENYLBUTYRATE\TAURURSODIOL
     Indication: Amyotrophic lateral sclerosis
     Dosage: 1 SACHET ONCE DAILY
     Route: 048
     Dates: start: 202301
  2. RELYVRIO [Suspect]
     Active Substance: SODIUM PHENYLBUTYRATE\TAURURSODIOL
     Dosage: 1 SACHET ONCE DAILY
     Route: 048
     Dates: start: 20230126
  3. DIPHENHYDRAMINE HYDROCHLORIDE [Concomitant]
     Active Substance: DIPHENHYDRAMINE HYDROCHLORIDE
     Indication: Product used for unknown indication

REACTIONS (8)
  - Erythema [Unknown]
  - Urticaria [Unknown]
  - Ocular hyperaemia [Unknown]
  - Pruritus [Unknown]
  - Throat tightness [Unknown]
  - Swelling [Unknown]
  - Abdominal discomfort [Unknown]
  - Intentional dose omission [Unknown]
